FAERS Safety Report 7074215-0 (Version None)
Quarter: 2010Q4

REPORT INFORMATION
  Report Type: 
  Country: None (occurrence: None)
  Receive Date: 20101029
  Receipt Date: 20101022
  Transmission Date: 20110411
  Serious: Yes (Other)
  Sender: FDA-Public Use
  Company Number: PH-PFIZER INC-2010085681

PATIENT
  Age: 74 Year
  Sex: Male
  Weight: 44 kg

DRUGS (2)
  1. ALFADIL [Suspect]
     Indication: BENIGN PROSTATIC HYPERPLASIA
     Dosage: 4 MG, UNK
     Dates: start: 20100609, end: 20100707
  2. AVODART [Concomitant]
     Dosage: UNK

REACTIONS (5)
  - DIZZINESS [None]
  - HYPERTENSION [None]
  - MYALGIA [None]
  - VERTIGO [None]
  - VISION BLURRED [None]
